FAERS Safety Report 18678044 (Version 1)
Quarter: 2020Q4

REPORT INFORMATION
  Report Type: Spontaneous
  Country: US (occurrence: US)
  Receive Date: 20201229
  Receipt Date: 20201229
  Transmission Date: 20210114
  Serious: No
  Sender: FDA-Public Use
  Company Number: US-PFIZER INC-2020509304

PATIENT
  Age: 72 Year
  Sex: Female
  Weight: 78.02 kg

DRUGS (1)
  1. PREMARIN [Suspect]
     Active Substance: ESTROGENS, CONJUGATED
     Indication: ATROPHIC VULVOVAGINITIS
     Dosage: 0.025 MG, 2X/WEEK (PUT SOME ON THE END OF HER FINGER AND RUB ON VAGINAL AREA TWICE WEEKLY)
     Route: 067

REACTIONS (5)
  - Product use issue [Unknown]
  - Rash papular [Recovering/Resolving]
  - Arthritis [Unknown]
  - Off label use [Unknown]
  - Osteoporosis [Unknown]
